FAERS Safety Report 11139865 (Version 1)
Quarter: 2015Q2

REPORT INFORMATION
  Report Type: Spontaneous
  Country: US (occurrence: US)
  Receive Date: 20150527
  Receipt Date: 20150527
  Transmission Date: 20150821
  Serious: No
  Sender: FDA-Public Use
  Company Number: US-ENDO PHARMACEUTICALS INC.-SPLN20150014

PATIENT
  Age: 11 Year
  Sex: Female

DRUGS (1)
  1. SUPPRELIN LA [Suspect]
     Active Substance: HISTRELIN ACETATE
     Indication: PRODUCT USED FOR UNKNOWN INDICATION
     Route: 065

REACTIONS (4)
  - Incision site swelling [Unknown]
  - Incision site rash [Recovered/Resolved]
  - Incision site erythema [Unknown]
  - Incision site pruritus [Unknown]

NARRATIVE: CASE EVENT DATE: 20150107
